FAERS Safety Report 5636889-8 (Version None)
Quarter: 2008Q1

REPORT INFORMATION
  Report Type: 
  Country: None (occurrence: None)
  Receive Date: 20080225
  Receipt Date: 20080219
  Transmission Date: 20080703
  Serious: Yes (Hospitalization, Other)
  Sender: FDA-Public Use
  Company Number: BR-ASTRAZENECA-2007UW25958

PATIENT
  Age: 65 Year
  Sex: Female
  Weight: 52 kg

DRUGS (9)
  1. ARIMIDEX [Suspect]
     Indication: OVARIAN CANCER
     Route: 048
     Dates: start: 20070501, end: 20070801
  2. CARDIZEM [Concomitant]
     Route: 048
     Dates: start: 19970101
  3. MONOCORDIL [Concomitant]
     Route: 048
     Dates: start: 19970101
  4. SOLMALGIN CARDIO [Concomitant]
     Indication: ANTICOAGULANT THERAPY
     Route: 048
     Dates: start: 19970101
  5. CELESTAMINE TAB [Concomitant]
     Indication: BRONCHITIS
     Route: 048
     Dates: start: 19970101
  6. NORVASC [Concomitant]
     Indication: HYPERTENSION
     Route: 048
     Dates: start: 19970101
  7. OMEPRAZOLE [Concomitant]
     Indication: DYSPEPSIA
     Route: 048
     Dates: start: 20050101
  8. PLASIL [Concomitant]
     Indication: NAUSEA
     Route: 048
  9. ZADITEN [Concomitant]
     Route: 048

REACTIONS (1)
  - VAGINAL HAEMORRHAGE [None]
